FAERS Safety Report 11217329 (Version 2)
Quarter: 2016Q4

REPORT INFORMATION
  Report Type: Report from Study
  Country: US (occurrence: US)
  Receive Date: 20150625
  Receipt Date: 20161102
  Transmission Date: 20170206
  Serious: No
  Sender: FDA-Public Use
  Company Number: US-AMGEN-USASP2015057971

PATIENT
  Age: 22 Year
  Sex: Male

DRUGS (2)
  1. ENBREL [Suspect]
     Active Substance: ETANERCEPT
     Indication: PSORIASIS
     Dosage: 50 MG, 2 TIMES/WK
     Route: 065
     Dates: start: 20140516
  2. ENBREL [Suspect]
     Active Substance: ETANERCEPT
     Dosage: UNK
     Route: 065
     Dates: start: 2015

REACTIONS (3)
  - Stress [Unknown]
  - Off label use [Unknown]
  - Injection site pain [Recovered/Resolved]

NARRATIVE: CASE EVENT DATE: 20140516
